FAERS Safety Report 15131255 (Version 3)
Quarter: 2019Q1

REPORT INFORMATION
  Report Type: Spontaneous
  Country: GR (occurrence: GR)
  Receive Date: 20180711
  Receipt Date: 20190208
  Transmission Date: 20190417
  Serious: Yes (Other)
  Sender: FDA-Public Use
  Company Number: GR-SA-2017SA255853

PATIENT
  Age: 62 Year
  Sex: Female

DRUGS (50)
  1. VINORELBINE TARTRATE. [Suspect]
     Active Substance: VINORELBINE TARTRATE
     Indication: BREAST CANCER METASTATIC
     Dosage: 1 DF, QCY
     Route: 065
     Dates: start: 2009, end: 2009
  2. EPIRUBICIN [Suspect]
     Active Substance: EPIRUBICIN
     Indication: BREAST CANCER METASTATIC
     Dosage: UNK UNK,QCY
     Route: 065
     Dates: start: 2006, end: 2006
  3. TRASTUZUMAB. [Suspect]
     Active Substance: TRASTUZUMAB
     Dosage: 1 DF, QCY
     Route: 065
     Dates: start: 2009, end: 2009
  4. TRASTUZUMAB. [Suspect]
     Active Substance: TRASTUZUMAB
     Dosage: 1 DF, QCY
     Route: 065
     Dates: start: 2009, end: 2009
  5. LAPATINIB [Suspect]
     Active Substance: LAPATINIB
     Indication: METASTATIC MALIGNANT MELANOMA
  6. ERIBULIN [Suspect]
     Active Substance: ERIBULIN
     Indication: RECURRENT CANCER
     Dosage: 1 DF,QD
     Route: 065
     Dates: start: 2009
  7. PACLITAXEL. [Suspect]
     Active Substance: PACLITAXEL
     Indication: BREAST CANCER METASTATIC
     Dosage: 1 DF, QCY
     Route: 065
     Dates: start: 2006, end: 2006
  8. TAMOXIFEN CITRATE. [Suspect]
     Active Substance: TAMOXIFEN CITRATE
     Indication: RECURRENT CANCER
     Dosage: 1 DF, QCY,COMBINATION WITH TRASTUZUMAB
     Route: 048
     Dates: start: 2009, end: 2009
  9. TAMOXIFEN CITRATE. [Suspect]
     Active Substance: TAMOXIFEN CITRATE
     Indication: BREAST CANCER METASTATIC
     Dosage: 1 DF,QD
     Route: 065
     Dates: start: 2009
  10. GEMCITABINE HYDROCHLORIDE. [Suspect]
     Active Substance: GEMCITABINE HYDROCHLORIDE
     Indication: RECURRENT CANCER
     Dosage: UNK
  11. EVEROLIMUS. [Suspect]
     Active Substance: EVEROLIMUS
     Indication: PROPHYLAXIS AGAINST TRANSPLANT REJECTION
     Dosage: UNK
  12. EVEROLIMUS. [Suspect]
     Active Substance: EVEROLIMUS
     Dosage: 1 DF
     Dates: start: 2009
  13. CARBOPLATIN. [Suspect]
     Active Substance: CARBOPLATIN
     Indication: BREAST CANCER METASTATIC
     Dosage: 1 DF,QD
     Route: 065
     Dates: start: 2009, end: 2009
  14. CAPECITABINE. [Suspect]
     Active Substance: CAPECITABINE
     Dosage: 1 DF, QD
     Dates: start: 2009, end: 2009
  15. TRASTUZUMAB. [Suspect]
     Active Substance: TRASTUZUMAB
     Dosage: 1 DF, QCY
     Route: 065
     Dates: start: 2009, end: 2009
  16. TRASTUZUMAB. [Suspect]
     Active Substance: TRASTUZUMAB
     Dosage: 1 DF, QCY
     Route: 065
     Dates: start: 2009, end: 2009
  17. EVEROLIMUS. [Suspect]
     Active Substance: EVEROLIMUS
     Indication: BREAST CANCER METASTATIC
     Dosage: 1 DF, QCY
     Route: 065
     Dates: start: 2009, end: 2009
  18. ERIBULIN [Suspect]
     Active Substance: ERIBULIN
     Indication: BREAST CANCER METASTATIC
     Dosage: 1 DF, QCY
     Route: 065
     Dates: start: 2009, end: 2009
  19. CAPECITABINE. [Suspect]
     Active Substance: CAPECITABINE
     Dosage: 1 DF, QCY
     Route: 065
     Dates: start: 2009, end: 2009
  20. FLUOROURACIL. [Suspect]
     Active Substance: FLUOROURACIL
     Indication: BREAST CANCER METASTATIC
     Dosage: 1 DF, QCY
     Route: 065
     Dates: start: 2006, end: 2006
  21. METHOTREXATE. [Suspect]
     Active Substance: METHOTREXATE
     Dosage: 1 DF,QD
     Route: 065
     Dates: start: 2006
  22. LAPATINIB [Suspect]
     Active Substance: LAPATINIB
     Indication: RECURRENT CANCER
     Dosage: 1 DF,QD
     Route: 065
     Dates: start: 2009
  23. DOCETAXEL. [Suspect]
     Active Substance: DOCETAXEL
     Indication: BREAST CANCER METASTATIC
     Dosage: 1 DF, QCY
     Route: 065
     Dates: start: 2009, end: 2009
  24. DOCETAXEL. [Suspect]
     Active Substance: DOCETAXEL
     Indication: RECURRENT CANCER
     Dosage: UNK
     Route: 065
     Dates: start: 2009
  25. CARBOPLATIN. [Suspect]
     Active Substance: CARBOPLATIN
     Indication: RECURRENT CANCER
     Dosage: 1 DF, QCY
     Route: 065
     Dates: start: 2009, end: 2009
  26. CAPECITABINE. [Suspect]
     Active Substance: CAPECITABINE
     Indication: BREAST CANCER METASTATIC
     Dosage: 1 DF, QCY
     Route: 065
     Dates: start: 2009, end: 2009
  27. GEMCITABINE HYDROCHLORIDE. [Suspect]
     Active Substance: GEMCITABINE HYDROCHLORIDE
     Indication: BREAST CANCER METASTATIC
     Dosage: ,COMBINATION WITH TRASTUZUMAB AND CARBOPLATIN1 DF, QD
     Route: 065
     Dates: start: 2009, end: 2009
  28. GEMCITABINE HYDROCHLORIDE. [Suspect]
     Active Substance: GEMCITABINE HYDROCHLORIDE
     Dosage: 1 DF, QCY
  29. CAPECITABINE. [Suspect]
     Active Substance: CAPECITABINE
     Dosage: 1 DF,QD
     Route: 065
     Dates: start: 2009
  30. EXEMESTANE. [Suspect]
     Active Substance: EXEMESTANE
     Indication: BREAST CANCER METASTATIC
     Dosage: 1 DF,QD
     Route: 065
     Dates: start: 2009
  31. TRASTUZUMAB. [Suspect]
     Active Substance: TRASTUZUMAB
     Dosage: 1 DF, QCY
     Route: 065
     Dates: start: 2009, end: 2009
  32. TRASTUZUMAB. [Suspect]
     Active Substance: TRASTUZUMAB
     Dosage: 1 DF, QCY
     Route: 065
     Dates: start: 2009, end: 2009
  33. TRASTUZUMAB. [Suspect]
     Active Substance: TRASTUZUMAB
     Dosage: 1 DF,QD
     Route: 065
     Dates: start: 2009
  34. CYCLOPHOSPHAMIDE. [Suspect]
     Active Substance: CYCLOPHOSPHAMIDE
     Indication: BREAST CANCER METASTATIC
     Dosage: UNK UNK,QCY
     Route: 065
     Dates: start: 2006, end: 2006
  35. FULVESTRANT. [Suspect]
     Active Substance: FULVESTRANT
     Indication: BREAST CANCER METASTATIC
     Dosage: 1 DF, QCY
     Route: 030
     Dates: start: 2009, end: 2009
  36. VINORELBINE TARTRATE. [Suspect]
     Active Substance: VINORELBINE TARTRATE
     Indication: RECURRENT CANCER
     Dosage: 1 DF, QD
     Route: 065
  37. EXEMESTANE. [Suspect]
     Active Substance: EXEMESTANE
     Indication: RECURRENT CANCER
     Dosage: 1 DF, QCY
     Route: 065
     Dates: start: 2009, end: 2009
  38. TRASTUZUMAB. [Suspect]
     Active Substance: TRASTUZUMAB
     Dosage: 1 DF, QCY
     Route: 065
     Dates: start: 2009, end: 2009
  39. TRASTUZUMAB. [Suspect]
     Active Substance: TRASTUZUMAB
     Dosage: 1 DF, QCY
     Route: 065
     Dates: start: 2009, end: 2009
  40. METHOTREXATE. [Suspect]
     Active Substance: METHOTREXATE
     Indication: BREAST CANCER METASTATIC
     Dosage: UNK UNK,QCY
     Route: 065
     Dates: start: 2006, end: 2006
  41. LIPOSOMAL DOXORUBICIN HYDROCHLORIDE [Suspect]
     Active Substance: DOXORUBICIN HYDROCHLORIDE
     Indication: RECURRENT CANCER
     Dosage: 1 DF,QD,COMBINATION WITH TRASTUZUMAB
     Route: 065
     Dates: start: 2009
  42. EPIRUBICIN [Suspect]
     Active Substance: EPIRUBICIN
     Dosage: 1 DF,QD
     Route: 065
     Dates: start: 2006
  43. TRASTUZUMAB. [Suspect]
     Active Substance: TRASTUZUMAB
     Indication: RECURRENT CANCER
     Dosage: 1 DF, QCY,COMBINATION WITH GEMCITABINE AND CARBOPLATIN
     Route: 065
     Dates: start: 2009, end: 2009
  44. TRASTUZUMAB. [Suspect]
     Active Substance: TRASTUZUMAB
     Indication: BREAST CANCER METASTATIC
     Dosage: 1 DF, QCY,COMBINATION WITH CAPECITABINE
     Dates: start: 2009
  45. TAMOXIFEN CITRATE. [Suspect]
     Active Substance: TAMOXIFEN CITRATE
     Dosage: UNK
  46. CYCLOPHOSPHAMIDE. [Suspect]
     Active Substance: CYCLOPHOSPHAMIDE
     Dosage: 1 DF,QD
     Route: 065
     Dates: start: 2006
  47. FULVESTRANT. [Suspect]
     Active Substance: FULVESTRANT
     Indication: RECURRENT CANCER
     Dosage: 1 DF, QD
     Route: 065
     Dates: start: 2009
  48. LAPATINIB [Suspect]
     Active Substance: LAPATINIB
     Indication: BREAST CANCER METASTATIC
     Dosage: 1 DF, QD
     Route: 065
     Dates: start: 2009, end: 2009
  49. EVEROLIMUS. [Suspect]
     Active Substance: EVEROLIMUS
     Indication: RECURRENT CANCER
     Dosage: 1 DF,QD
     Route: 065
     Dates: start: 2009
  50. LIPOSOMAL DOXORUBICIN HYDROCHLORIDE [Suspect]
     Active Substance: DOXORUBICIN HYDROCHLORIDE
     Indication: BREAST CANCER METASTATIC
     Dosage: 1 DF, QCY
     Route: 065
     Dates: start: 2009, end: 2009

REACTIONS (8)
  - Skin mass [Unknown]
  - Metastases to lymph nodes [Unknown]
  - Malignant neoplasm progression [Unknown]
  - Oestrogen receptor positive breast cancer [Unknown]
  - Metastases to bone [Unknown]
  - Metastases to lung [Unknown]
  - Metastases to skin [Unknown]
  - Recurrent cancer [Unknown]

NARRATIVE: CASE EVENT DATE: 2009
